FAERS Safety Report 4438933-2 (Version None)
Quarter: 2004Q3

REPORT INFORMATION
  Report Type: 
  Country: None (occurrence: None)
  Receive Date: 20040830
  Receipt Date: 20040817
  Transmission Date: 20050211
  Serious: Yes (Other)
  Sender: FDA-Public Use
  Company Number: K200401239

PATIENT
  Age: 31 Year
  Sex: Female

DRUGS (5)
  1. ALTACE [Suspect]
     Indication: DIABETES MELLITUS
     Dates: start: 20040401, end: 20040701
  2. 6-MP (MERCAPTOPURNE) [Concomitant]
  3. INSULIN [Concomitant]
  4. ASACOL [Concomitant]
  5. LIPITOR [Concomitant]

REACTIONS (1)
  - CHOLESTASIS [None]
